FAERS Safety Report 24681298 (Version 1)
Quarter: 2024Q4

REPORT INFORMATION
  Report Type: Report from Study
  Country: PR (occurrence: PR)
  Receive Date: 20241129
  Receipt Date: 20241129
  Transmission Date: 20250115
  Serious: Yes (Other)
  Sender: ABBVIE
  Company Number: PR-ABBVIE-6018466

PATIENT
  Age: 38 Year
  Sex: Female

DRUGS (1)
  1. HUMIRA [Suspect]
     Active Substance: ADALIMUMAB
     Indication: Rheumatoid arthritis
     Dosage: CITRATE FREE
     Route: 058
     Dates: start: 20150310

REACTIONS (6)
  - Ovarian cyst [Recovering/Resolving]
  - Pulmonary mass [Not Recovered/Not Resolved]
  - Dysuria [Recovered/Resolved]
  - Hydrosalpinx [Recovering/Resolving]
  - Kidney infection [Recovered/Resolved]
  - Adhesion [Recovering/Resolving]

NARRATIVE: CASE EVENT DATE: 20240301
